FAERS Safety Report 22119187 (Version 2)
Quarter: 2023Q2

REPORT INFORMATION
  Report Type: Report from Study
  Country: CA (occurrence: CA)
  Receive Date: 20230321
  Receipt Date: 20230418
  Transmission Date: 20230721
  Serious: Yes (Hospitalization)
  Sender: FDA-Public Use
  Company Number: CA-TAKEDA-2023TUS027524

PATIENT
  Age: 28 Year
  Sex: Male

DRUGS (4)
  1. VEDOLIZUMAB [Suspect]
     Active Substance: VEDOLIZUMAB
     Indication: Colitis ulcerative
     Dosage: 300 MILLIGRAM
     Route: 042
     Dates: start: 20210703
  2. VEDOLIZUMAB [Suspect]
     Active Substance: VEDOLIZUMAB
     Dosage: 300 MILLIGRAM, Q4WEEKS
     Route: 042
     Dates: start: 20211213
  3. MESALAMINE [Concomitant]
     Active Substance: MESALAMINE
     Dosage: UNK
     Dates: start: 2020
  4. VANCOMYCIN [Concomitant]
     Active Substance: VANCOMYCIN
     Dosage: UNK
     Dates: start: 20210616

REACTIONS (3)
  - Injury [Unknown]
  - Somnolence [Unknown]
  - Off label use [Unknown]

NARRATIVE: CASE EVENT DATE: 20211213
